FAERS Safety Report 6524711-7 (Version None)
Quarter: 2010Q1

REPORT INFORMATION
  Report Type: 
  Country: None (occurrence: None)
  Receive Date: 20100104
  Receipt Date: 20091230
  Transmission Date: 20100710
  Serious: Yes (Death, Life-Threatening, Hospitalization)
  Sender: FDA-Public Use
  Company Number: FR-SANOFI-AVENTIS-2009SA011630

PATIENT
  Age: 63 Year
  Sex: Female

DRUGS (3)
  1. ARAVA [Suspect]
     Route: 048
     Dates: start: 20030301, end: 20090901
  2. REMICADE [Suspect]
     Route: 042
     Dates: start: 20041014, end: 20090728
  3. HYDROCORTISONE [Concomitant]
     Route: 048

REACTIONS (3)
  - ASTHMA [None]
  - PULMONARY ARTERIAL HYPERTENSION [None]
  - SEPSIS [None]
